FAERS Safety Report 6160483-6 (Version None)
Quarter: 2009Q2

REPORT INFORMATION
  Report Type: 
  Country: None (occurrence: None)
  Receive Date: 20090420
  Receipt Date: 20090414
  Transmission Date: 20091009
  Serious: Yes (Death)
  Sender: FDA-Public Use
  Company Number: DE-ASTRAZENECA-2009PK00678

PATIENT
  Age: 77 Year
  Sex: Female

DRUGS (9)
  1. SEROQUEL [Suspect]
     Route: 048
     Dates: start: 20080225, end: 20080305
  2. SEROQUEL [Suspect]
     Route: 048
     Dates: start: 20080306, end: 20080316
  3. SEROQUEL [Suspect]
     Route: 048
     Dates: start: 20080317, end: 20080327
  4. HALDOL [Suspect]
     Route: 048
     Dates: start: 20080307, end: 20080312
  5. HALDOL [Suspect]
     Route: 048
     Dates: start: 20080313, end: 20080327
  6. REMERGIL [Suspect]
     Dosage: 15-30 MG
     Route: 048
     Dates: start: 20080218, end: 20080327
  7. TEGRETOL [Suspect]
     Route: 048
     Dates: start: 20080314, end: 20080327
  8. METOPROLOL SUCCINATE [Interacting]
     Route: 048
     Dates: start: 20080101, end: 20080327
  9. LEVOTHYROXINE SODIUM [Concomitant]
     Route: 048
     Dates: start: 20080101, end: 20080327

REACTIONS (1)
  - DEATH [None]
